FAERS Safety Report 8343214-0 (Version None)
Quarter: 2012Q2

REPORT INFORMATION
  Report Type: 
  Country: None (occurrence: None)
  Receive Date: 20120504
  Receipt Date: 20120504
  Transmission Date: 20120825
  Serious: No
  Sender: FDA-Public Use
  Company Number: None

PATIENT
  Age: 67 Year
  Sex: Female
  Weight: 103.8737 kg

DRUGS (2)
  1. GEMZAR [Suspect]
     Dosage: 1600MG - IVSS- Q2W
     Dates: start: 20120320
  2. GEMZAR [Suspect]
     Dosage: 1600MG - IVSS- Q2W
     Dates: start: 20120410

REACTIONS (1)
  - FEELING HOT [None]
